FAERS Safety Report 12264608 (Version 1)
Quarter: 2016Q2

REPORT INFORMATION
  Report Type: Spontaneous
  Country: US (occurrence: US)
  Receive Date: 20160413
  Receipt Date: 20160413
  Transmission Date: 20160815
  Serious: No
  Sender: FDA-Public Use
  Company Number: US-JNJFOC-20160310562

PATIENT
  Age: 59 Year
  Sex: Female
  Weight: 70.31 kg

DRUGS (15)
  1. MENS ROGAINE EXTRA STRENGTH [Suspect]
     Active Substance: MINOXIDIL
     Indication: ALOPECIA
     Dosage: EVERY OTHER DAY
     Route: 061
  2. HORMONES [Concomitant]
     Active Substance: UNSPECIFIED INGREDIENT
     Indication: HORMONE REPLACEMENT THERAPY
     Dosage: DAILY
     Route: 065
  3. OESTRADIOL [Concomitant]
     Active Substance: ESTROGENS
     Indication: HORMONE REPLACEMENT THERAPY
     Dosage: DAILY, 2.1 MG
     Route: 065
  4. VITAMIN C [Concomitant]
     Active Substance: ASCORBIC ACID
     Indication: ROUTINE HEALTH MAINTENANCE
     Route: 065
  5. RISPERDAL [Concomitant]
     Active Substance: RISPERIDONE
     Indication: ROUTINE HEALTH MAINTENANCE
     Dosage: DAILY
     Route: 065
  6. TESTOSTERONE. [Concomitant]
     Active Substance: TESTOSTERONE
     Indication: HORMONE REPLACEMENT THERAPY
     Dosage: 1 CLICK, DAILY
     Route: 065
  7. PROGESTERONE. [Concomitant]
     Active Substance: PROGESTERONE
     Indication: HORMONE REPLACEMENT THERAPY
     Route: 065
  8. COCONUT OIL [Concomitant]
     Active Substance: COCONUT OIL
     Indication: ROUTINE HEALTH MAINTENANCE
     Route: 065
  9. MENS ROGAINE EXTRA STRENGTH [Suspect]
     Active Substance: MINOXIDIL
     Route: 061
  10. NATURE-THROID [Concomitant]
     Active Substance: THYROID, PORCINE
     Indication: HYPOTHYROIDISM
     Dosage: 16.25, DAILY
     Route: 065
  11. WESTHROID [Concomitant]
     Active Substance: THYROGLOBULIN
     Indication: HYPOTHYROIDISM
     Dosage: 65 MG, DAILY
     Route: 065
  12. VITAMIN D [Concomitant]
     Active Substance: CHOLECALCIFEROL
     Indication: ROUTINE HEALTH MAINTENANCE
     Route: 065
  13. FISH OIL [Concomitant]
     Active Substance: FISH OIL
     Indication: ROUTINE HEALTH MAINTENANCE
     Route: 065
  14. COQ10 [Concomitant]
     Active Substance: UBIDECARENONE
     Indication: ROUTINE HEALTH MAINTENANCE
     Route: 065
  15. PROBIOTICS NOS [Concomitant]
     Active Substance: PROBIOTICS NOS
     Indication: ROUTINE HEALTH MAINTENANCE
     Route: 065

REACTIONS (7)
  - Hair colour changes [Not Recovered/Not Resolved]
  - Hair growth abnormal [Not Recovered/Not Resolved]
  - Product use issue [Unknown]
  - Wrong patient received medication [Unknown]
  - Off label use [Unknown]
  - Alopecia [Not Recovered/Not Resolved]
  - Application site irritation [Not Recovered/Not Resolved]
